FAERS Safety Report 18108397 (Version 1)
Quarter: 2020Q3

REPORT INFORMATION
  Report Type: Spontaneous
  Country: DE (occurrence: DE)
  Receive Date: 20200804
  Receipt Date: 20200804
  Transmission Date: 20201103
  Serious: Yes (Hospitalization)
  Sender: FDA-Public Use
  Company Number: DE-ROCHE-2651632

PATIENT
  Age: 82 Year
  Sex: Male
  Weight: 74 kg

DRUGS (9)
  1. NEULASTA [Suspect]
     Active Substance: PEGFILGRASTIM
     Indication: PROPHYLAXIS
     Dosage: AFTER CHEMO
     Route: 058
     Dates: start: 20200521
  2. CYCLOPHOSPHAMIDE. [Suspect]
     Active Substance: CYCLOPHOSPHAMIDE
     Indication: NON-HODGKIN^S LYMPHOMA
     Dosage: CYCLICAL
     Route: 065
     Dates: start: 20200520
  3. DOXORUBICIN [Suspect]
     Active Substance: DOXORUBICIN
     Indication: NON-HODGKIN^S LYMPHOMA
     Dosage: 68.25 MILLIGRAM, CYCLICAL
     Route: 065
     Dates: start: 20200520
  4. CYCLOPHOSPHAMIDE. [Suspect]
     Active Substance: CYCLOPHOSPHAMIDE
     Dosage: CYCLICAL (DAY 2)?MOST RECENT DOSE PRIOR TO AE 19/MAY/2020
     Route: 065
     Dates: start: 20200310
  5. VINCRISTINE [Concomitant]
     Active Substance: VINCRISTINE
     Indication: NON-HODGKIN^S LYMPHOMA
     Dosage: 1 MILLIGRAM, CYCLICAL (DAY 2)
     Dates: start: 20200520
  6. DOXORUBICIN [Suspect]
     Active Substance: DOXORUBICIN
     Dosage: 68.25 MILLIGRAM, CYCLICAL (DAY 2)?MOST RECENT DOSE PRIOR TO AE 19/MAY/2020
     Route: 065
     Dates: start: 20200310
  7. RITUXIMAB. [Suspect]
     Active Substance: RITUXIMAB
     Indication: NON-HODGKIN^S LYMPHOMA
     Dosage: CYCLICAL
     Route: 065
     Dates: start: 20200519
  8. RITUXIMAB. [Suspect]
     Active Substance: RITUXIMAB
     Dosage: 731.25 MILLIGRAM, CYCLICAL (DAY 1 OF 22 DAYS)
     Route: 065
     Dates: start: 20200310
  9. NEULASTA [Suspect]
     Active Substance: PEGFILGRASTIM
     Route: 058

REACTIONS (4)
  - Pyrexia [Recovered/Resolved]
  - General physical health deterioration [Recovered/Resolved]
  - Leukopenia [Recovered/Resolved]
  - Therapeutic product effect decreased [Unknown]

NARRATIVE: CASE EVENT DATE: 20200525
